FAERS Safety Report 13127531 (Version 7)
Quarter: 2018Q3

REPORT INFORMATION
  Report Type: Report from Study
  Country: BR (occurrence: BR)
  Receive Date: 20170118
  Receipt Date: 20180807
  Transmission Date: 20181010
  Serious: Yes (Hospitalization, Other)
  Sender: FDA-Public Use
  Company Number: PHHY2017BR004920

PATIENT
  Age: 35 Year
  Sex: Female
  Weight: 67 kg

DRUGS (4)
  1. EXJADE [Suspect]
     Active Substance: DEFERASIROX
     Dosage: 2000 MG, UNK
     Route: 048
  2. EXJADE [Suspect]
     Active Substance: DEFERASIROX
     Dosage: 1500 MG, QD
     Route: 048
     Dates: start: 2013
  3. EXJADE [Suspect]
     Active Substance: DEFERASIROX
     Indication: SICKLE CELL ANAEMIA
     Dosage: 2000 MG, QD (FOUR 500MG TABLETS)
     Route: 048
     Dates: start: 20130210
  4. EXJADE [Suspect]
     Active Substance: DEFERASIROX
     Dosage: 6 DF, UNK (6 TABLETS OF 250 MG)
     Route: 048

REACTIONS (17)
  - Sickle cell anaemia with crisis [Recovered/Resolved]
  - Wrong technique in product usage process [Unknown]
  - Nausea [Not Recovered/Not Resolved]
  - Lung infection [Unknown]
  - Serum ferritin increased [Unknown]
  - Vomiting [Unknown]
  - Thoracic outlet syndrome [Unknown]
  - Dysgeusia [Recovered/Resolved]
  - Hepatomegaly [Unknown]
  - Weight decreased [Unknown]
  - Pneumonia [Unknown]
  - Haemoglobin decreased [Unknown]
  - Infection [Unknown]
  - Hypertension [Unknown]
  - Pain [Unknown]
  - Product solubility abnormal [Unknown]
  - Hypotension [Unknown]

NARRATIVE: CASE EVENT DATE: 201806
